FAERS Safety Report 14783873 (Version 1)
Quarter: 2018Q2

REPORT INFORMATION
  Report Type: Spontaneous
  Country: FR (occurrence: FR)
  Receive Date: 20180420
  Receipt Date: 20180420
  Transmission Date: 20180711
  Serious: Yes (Other)
  Sender: FDA-Public Use
  Company Number: FR-JNJFOC-20180423691

PATIENT
  Age: 73 Year
  Sex: Male

DRUGS (3)
  1. BISOPROLOL [Concomitant]
     Active Substance: BISOPROLOL
     Route: 065
  2. AMIODARONE [Concomitant]
     Active Substance: AMIODARONE
     Route: 065
     Dates: start: 2016, end: 2017
  3. XARELTO [Suspect]
     Active Substance: RIVAROXABAN
     Indication: ATRIAL FIBRILLATION
     Route: 048

REACTIONS (3)
  - Dyspnoea exertional [Unknown]
  - Cough [Unknown]
  - Pulmonary fibrosis [Unknown]
